FAERS Safety Report 11585013 (Version 1)
Quarter: 2015Q4

REPORT INFORMATION
  Report Type: Spontaneous
  Country: IT (occurrence: IT)
  Receive Date: 20151001
  Receipt Date: 20151001
  Transmission Date: 20160304
  Serious: Yes (Other)
  Sender: FDA-Public Use
  Company Number: IT-009507513-1509ITA012625

PATIENT
  Age: 68 Year
  Sex: Male

DRUGS (1)
  1. TEMOZOLOMIDE. [Suspect]
     Active Substance: TEMOZOLOMIDE
     Indication: GLIOMATOSIS CEREBRI
     Dosage: 150 MG/M2, QD; 1 WEEK ON 1 WEEK OFF

REACTIONS (3)
  - Central nervous system lesion [Unknown]
  - Immunosuppression [Unknown]
  - Nocardiosis [Recovered/Resolved]
